FAERS Safety Report 7787381-6 (Version None)
Quarter: 2011Q3

REPORT INFORMATION
  Report Type: 
  Country: None (occurrence: None)
  Receive Date: 20110929
  Receipt Date: 20110924
  Transmission Date: 20111222
  Serious: Yes (Hospitalization)
  Sender: FDA-Public Use
  Company Number: PHHY2011IT85463

PATIENT
  Age: 74 Year
  Sex: Female

DRUGS (3)
  1. EXJADE [Suspect]
     Indication: MYELODYSPLASTIC SYNDROME
     Dosage: 7.5 MG/KG
     Route: 048
  2. DANAZOL [Concomitant]
  3. BLOOD TRANSFUSION, AUXILIARY PRODUCTS [Concomitant]
     Dosage: 8 UNITS CRC/MONTH

REACTIONS (6)
  - BLOOD CREATININE INCREASED [None]
  - PYREXIA [None]
  - ABDOMINAL PAIN [None]
  - TUBULOINTERSTITIAL NEPHRITIS [None]
  - DIARRHOEA [None]
  - ASTHENIA [None]
